FAERS Safety Report 7897035-3 (Version None)
Quarter: 2011Q4

REPORT INFORMATION
  Report Type: 
  Country: None (occurrence: None)
  Receive Date: 20111107
  Receipt Date: 20110817
  Transmission Date: 20120403
  Serious: Yes (Other)
  Sender: FDA-Public Use
  Company Number: US-BAYER-200838205NA

PATIENT
  Age: 68 Year
  Sex: Female
  Weight: 70 kg

DRUGS (12)
  1. MAGNEVIST [Suspect]
     Indication: NUCLEAR MAGNETIC RESONANCE IMAGING
  2. OMNISCAN [Suspect]
     Dosage: UNK
     Dates: start: 20050502, end: 20050502
  3. OPTIMARK [Suspect]
     Indication: NUCLEAR MAGNETIC RESONANCE IMAGING
  4. OMNISCAN [Suspect]
     Indication: NUCLEAR MAGNETIC RESONANCE IMAGING BRAIN
     Dosage: UNK
     Dates: start: 20050407, end: 20050407
  5. MAXZIDE [Concomitant]
  6. OMNISCAN [Suspect]
  7. MULTIHANCE [Suspect]
     Indication: NUCLEAR MAGNETIC RESONANCE IMAGING
  8. ZOCOR [Concomitant]
  9. OMNISCAN [Suspect]
     Indication: NUCLEAR MAGNETIC RESONANCE IMAGING
     Dosage: UNK
     Dates: start: 20060117, end: 20060117
  10. PROHANCE [Suspect]
     Indication: NUCLEAR MAGNETIC RESONANCE IMAGING
  11. INSULIN [Concomitant]
  12. ATENOLOL [Concomitant]

REACTIONS (10)
  - PAIN [None]
  - ANXIETY [None]
  - BLISTER [None]
  - FIBROSIS [None]
  - SKIN INDURATION [None]
  - EMOTIONAL DISTRESS [None]
  - SKIN HYPERTROPHY [None]
  - NEPHROGENIC SYSTEMIC FIBROSIS [None]
  - UNEVALUABLE EVENT [None]
  - OEDEMA PERIPHERAL [None]
